FAERS Safety Report 8262664-4 (Version None)
Quarter: 2012Q2

REPORT INFORMATION
  Report Type: 
  Country: None (occurrence: None)
  Receive Date: 20120405
  Receipt Date: 20120322
  Transmission Date: 20120825
  Serious: Yes (Hospitalization)
  Sender: FDA-Public Use
  Company Number: FR-WATSON-2012-05051

PATIENT
  Sex: Male

DRUGS (2)
  1. RAPAFLO [Suspect]
     Indication: BENIGN PROSTATIC HYPERPLASIA
     Dosage: 8 MG, DAILY
     Route: 048
     Dates: start: 20120309
  2. RAPAFLO [Suspect]
     Dosage: 8 MG, DAILY
     Route: 048
     Dates: start: 20120101, end: 20120306

REACTIONS (4)
  - EJACULATION DISORDER [None]
  - URINARY RETENTION [None]
  - MYALGIA [None]
  - MUSCULOSKELETAL STIFFNESS [None]
